FAERS Safety Report 12632922 (Version 1)
Quarter: 2016Q3

REPORT INFORMATION
  Report Type: Spontaneous
  Country: US (occurrence: None)
  Receive Date: 20160808
  Receipt Date: 20160808
  Transmission Date: 20161109
  Serious: Yes (Other)
  Sender: FDA-Public Use
  Company Number: None

PATIENT
  Age: 56 Year
  Sex: Male
  Weight: 163.3 kg

DRUGS (14)
  1. SINGULAIR [Concomitant]
     Active Substance: MONTELUKAST SODIUM
  2. PRILOSECT [Concomitant]
  3. MACUNA [Concomitant]
  4. POTASSIUM [Concomitant]
     Active Substance: POTASSIUM
  5. WELLBUTRIN / BUPROPION [Concomitant]
  6. LISINOPRIL.HCTZ [Concomitant]
  7. MAGNESIUM [Concomitant]
     Active Substance: MAGNESIUM
  8. PRURIENS [Concomitant]
  9. LORATEDINE [Concomitant]
  10. SINEMET [Concomitant]
     Active Substance: CARBIDOPA\LEVODOPA
  11. COLCHICINE. [Concomitant]
     Active Substance: COLCHICINE
  12. ALEVE [Concomitant]
     Active Substance: NAPROXEN SODIUM
  13. VITAMIN D3 [Concomitant]
     Active Substance: CHOLECALCIFEROL
  14. BUPROPION. [Suspect]
     Active Substance: BUPROPION
     Indication: DEPRESSION
     Route: 048
     Dates: start: 20160101, end: 20160731

REACTIONS (5)
  - Product size issue [None]
  - Drug ineffective [None]
  - Product substitution issue [None]
  - Crying [None]
  - Product colour issue [None]

NARRATIVE: CASE EVENT DATE: 20160802
